FAERS Safety Report 4675342-5 (Version None)
Quarter: 2005Q2

REPORT INFORMATION
  Report Type: 
  Country: None (occurrence: None)
  Receive Date: 20050527
  Receipt Date: 20050517
  Transmission Date: 20051028
  Serious: Yes (Other)
  Sender: FDA-Public Use
  Company Number: BR-BRISTOL-MYERS SQUIBB COMPANY-12971594

PATIENT
  Age: 21 Year
  Sex: Male

DRUGS (1)
  1. ENTECAVIR [Suspect]
     Indication: HEPATITIS B
     Dosage: INTERRUPTED ON 12-MAY-2005.
     Route: 048
     Dates: start: 20040823

REACTIONS (1)
  - DIPLOPIA [None]
